FAERS Safety Report 5416764-4 (Version None)
Quarter: 2007Q3

REPORT INFORMATION
  Report Type: 
  Country: None (occurrence: None)
  Receive Date: 20070816
  Receipt Date: 20070806
  Transmission Date: 20080115
  Serious: Yes (Other)
  Sender: FDA-Public Use
  Company Number: GB-AMGEN-US238694

PATIENT
  Sex: Female
  Weight: 70.1 kg

DRUGS (11)
  1. ENBREL [Suspect]
     Indication: RHEUMATOID ARTHRITIS
     Route: 058
     Dates: start: 20040726
  2. PREDNISOLONE [Concomitant]
     Route: 048
     Dates: start: 20060111, end: 20060131
  3. PREDNISOLONE [Concomitant]
     Route: 048
     Dates: start: 20060131, end: 20060214
  4. ERYTHROMYCIN [Concomitant]
     Route: 048
     Dates: start: 20060131, end: 20060202
  5. METHOTREXATE [Concomitant]
     Route: 048
     Dates: start: 20030601
  6. SUMATRIPTAN SUCCINATE [Concomitant]
     Indication: MIGRAINE
     Dosage: P.R.N
     Route: 045
     Dates: start: 20040401
  7. PARACETAMOL [Concomitant]
     Dosage: P.R.N
     Route: 048
     Dates: start: 20030701
  8. CODEINE PHOSPHATE [Concomitant]
     Dosage: P.R.N
     Dates: start: 20030701
  9. TRIAMCINOLONE [Concomitant]
     Dosage: UNKNOWN
     Route: 014
     Dates: start: 20060111
  10. AMOXICILLIN [Concomitant]
     Route: 048
     Dates: start: 20060126
  11. AMOXICILLIN [Concomitant]
     Route: 048

REACTIONS (5)
  - CONDITION AGGRAVATED [None]
  - DECREASED APPETITE [None]
  - JUVENILE ARTHRITIS [None]
  - LOWER RESPIRATORY TRACT INFECTION [None]
  - VOMITING [None]
